FAERS Safety Report 18908959 (Version 1)
Quarter: 2021Q1

REPORT INFORMATION
  Report Type: Spontaneous
  Country: US (occurrence: US)
  Receive Date: 20210217
  Receipt Date: 20210217
  Transmission Date: 20210420
  Serious: Yes (Death, Hospitalization)
  Sender: FDA-Public Use
  Company Number: None

PATIENT
  Age: 83 Year
  Sex: Male
  Weight: 79.5 kg

DRUGS (2)
  1. CLOPIDOGREL [Suspect]
     Active Substance: CLOPIDOGREL BISULFATE
     Route: 048
     Dates: start: 20180701, end: 20200618
  2. APIXABAN [Suspect]
     Active Substance: APIXABAN
     Indication: ATRIAL FIBRILLATION
     Route: 048
     Dates: start: 20180721, end: 20200618

REACTIONS (8)
  - Fall [None]
  - Tonic convulsion [None]
  - Intracranial mass [None]
  - Injury [None]
  - Subdural haematoma [None]
  - Muscle rigidity [None]
  - Unresponsive to stimuli [None]
  - Intraventricular haemorrhage [None]

NARRATIVE: CASE EVENT DATE: 20200618
